FAERS Safety Report 16878101 (Version 1)
Quarter: 2019Q4

REPORT INFORMATION
  Report Type: Spontaneous
  Country: US (occurrence: US)
  Receive Date: 20191002
  Receipt Date: 20191002
  Transmission Date: 20200122
  Serious: No
  Sender: FDA-Public Use
  Company Number: US-009507513-1909USA009394

PATIENT
  Age: 18 Year
  Sex: Female
  Weight: 99.77 kg

DRUGS (1)
  1. NEXPLANON [Suspect]
     Active Substance: ETONOGESTREL
     Indication: CONTRACEPTION
     Dosage: 1 IMPLANT EVERY 3 TO 5 YEARS, LEFT ARM
     Route: 059
     Dates: start: 20190918

REACTIONS (5)
  - Inappropriate schedule of product administration [Unknown]
  - Implant site haemorrhage [Recovered/Resolved]
  - Blood disorder [Unknown]
  - Device deployment issue [Not Recovered/Not Resolved]
  - Implant site bruising [Not Recovered/Not Resolved]

NARRATIVE: CASE EVENT DATE: 2019
